FAERS Safety Report 16805984 (Version 1)
Quarter: 2019Q3

REPORT INFORMATION
  Report Type: Spontaneous
  Country: US (occurrence: US)
  Receive Date: 20190724
  Receipt Date: 20190724
  Transmission Date: 20191005
  Serious: No
  Sender: FDA-Public Use
  Company Number: None

PATIENT

DRUGS (3)
  1. MUCOMYST [Suspect]
     Active Substance: ACETYLCYSTEINE
  2. ACETYLCYSTEINE. [Suspect]
     Active Substance: ACETYLCYSTEINE
  3. ACETYLCYSTEINE. [Suspect]
     Active Substance: ACETYLCYSTEINE

REACTIONS (2)
  - Incorrect route of product administration [None]
  - Product packaging confusion [None]
